FAERS Safety Report 9105894 (Version 2)
Quarter: 2013Q1

REPORT INFORMATION
  Report Type: Spontaneous
  Country: US (occurrence: US)
  Receive Date: 20130220
  Receipt Date: 20130306
  Transmission Date: 20140127
  Serious: Yes (Death)
  Sender: FDA-Public Use
  Company Number: US-GILEAD-2013-0070129

PATIENT
  Sex: Female

DRUGS (4)
  1. LETAIRIS [Suspect]
     Indication: PULMONARY FIBROSIS
     Dosage: 10 MG, QD
     Dates: start: 20120131
  2. LETAIRIS [Suspect]
     Dosage: UNK
     Dates: start: 20100923
  3. TYVASO [Concomitant]
  4. OXYGEN [Concomitant]

REACTIONS (1)
  - Death [Fatal]
